FAERS Safety Report 16722371 (Version 1)
Quarter: 2019Q3

REPORT INFORMATION
  Report Type: Spontaneous
  Country: CO (occurrence: CO)
  Receive Date: 20190820
  Receipt Date: 20190820
  Transmission Date: 20191005
  Serious: Yes (Other)
  Sender: FDA-Public Use
  Company Number: CO-BIOMARINAP-CO-2019-125274

PATIENT
  Age: 5 Year
  Sex: Male

DRUGS (1)
  1. ALDURAZYME [Suspect]
     Active Substance: LARONIDASE
     Indication: MUCOPOLYSACCHARIDOSIS I
     Dosage: 4 DOSAGE FORM, QW
     Route: 041
     Dates: start: 20150828

REACTIONS (2)
  - Adenoidectomy [Recovering/Resolving]
  - Turbinectomy [Recovering/Resolving]

NARRATIVE: CASE EVENT DATE: 20190806
